FAERS Safety Report 10971291 (Version 1)
Quarter: 2015Q1

REPORT INFORMATION
  Report Type: Spontaneous
  Country: GB (occurrence: GB)
  Receive Date: 20150331
  Receipt Date: 20150331
  Transmission Date: 20150721
  Serious: Yes (Death)
  Sender: FDA-Public Use
  Company Number: GB-PFIZER INC-2015112026

PATIENT
  Age: 64 Year
  Sex: Male
  Weight: 76.1 kg

DRUGS (16)
  1. METHYLPREDNISOLONE. [Suspect]
     Active Substance: METHYLPREDNISOLONE
     Indication: PULMONARY FIBROSIS
     Dosage: HIGH DOSE
  2. ZANAMIVIR [Concomitant]
     Active Substance: ZANAMIVIR
     Indication: INFLUENZA
     Dosage: 600MG X1 DOSE, FOLLOWED BY 250MG INTRAVENOUS TWICE DAILY
     Route: 042
     Dates: start: 20150126, end: 20150131
  3. LINEZOLID. [Concomitant]
     Active Substance: LINEZOLID
     Dosage: UNK
  4. HALOPERIDOL. [Concomitant]
     Active Substance: HALOPERIDOL
     Dosage: UNK
  5. MEROPENEM. [Concomitant]
     Active Substance: MEROPENEM
     Dosage: UNK
  6. NEOSTIGMINE [Concomitant]
     Active Substance: NEOSTIGMINE
     Dosage: UNK
  7. AZATHIOPRINE. [Concomitant]
     Active Substance: AZATHIOPRINE
     Indication: IMMUNOSUPPRESSANT DRUG THERAPY
     Dosage: UNK
  8. CICLOSPORINE [Concomitant]
     Active Substance: CYCLOSPORINE
     Indication: IMMUNOSUPPRESSANT DRUG THERAPY
     Dosage: UNK
  9. MYCOPHENOLATE MOFETIL. [Concomitant]
     Active Substance: MYCOPHENOLATE MOFETIL
     Indication: IMMUNOSUPPRESSANT DRUG THERAPY
     Dosage: UNK
  10. METHYLPREDNISOLONE. [Suspect]
     Active Substance: METHYLPREDNISOLONE
     Indication: LIVER FUNCTION TEST ABNORMAL
  11. ZANAMIVIR [Concomitant]
     Active Substance: ZANAMIVIR
     Dosage: 600 MG, SINGLE
     Route: 042
     Dates: start: 20150126
  12. OSELTAMIVIR [Concomitant]
     Active Substance: OSELTAMIVIR
     Dosage: UNK
  13. ACICLOVIR [Concomitant]
     Active Substance: ACYCLOVIR
     Dosage: UNK
  14. CASPOFUNGIN [Concomitant]
     Active Substance: CASPOFUNGIN
     Dosage: UNK
  15. CLONIDINE. [Concomitant]
     Active Substance: CLONIDINE
     Dosage: UNK
  16. PROPOFOL. [Concomitant]
     Active Substance: PROPOFOL
     Dosage: UNK

REACTIONS (1)
  - Intestinal perforation [Fatal]

NARRATIVE: CASE EVENT DATE: 20150216
